FAERS Safety Report 6569696-2 (Version None)
Quarter: 2010Q1

REPORT INFORMATION
  Report Type: 
  Country: None (occurrence: None)
  Receive Date: 20100204
  Receipt Date: 20100127
  Transmission Date: 20100710
  Serious: Yes (Hospitalization, Other)
  Sender: FDA-Public Use
  Company Number: PHHY2010FR04500

PATIENT
  Sex: Female
  Weight: 49.1 kg

DRUGS (6)
  1. STALEVO 100 [Suspect]
     Dosage: 800 MG DAILY
  2. SIFROL [Suspect]
     Dosage: 3 DF DAILY
  3. SINEMET [Suspect]
     Dosage: 100 MG QD, 200 MG QD (SINEMET LP)
  4. MORPHINE [Suspect]
     Dosage: UNK
     Dates: start: 20091201
  5. PROZAC [Concomitant]
     Dosage: 20 MG, QD
  6. RIVOTRIL [Concomitant]
     Dosage: 5 DROPS DAILY

REACTIONS (11)
  - AGITATION [None]
  - BACK PAIN [None]
  - CONFUSIONAL STATE [None]
  - DEPRESSION [None]
  - HALLUCINATION [None]
  - HYPOTHYROIDISM [None]
  - MANIA [None]
  - OSTEOPOROTIC FRACTURE [None]
  - SPINAL COLUMN INJURY [None]
  - SUICIDE ATTEMPT [None]
  - TREMOR [None]
